FAERS Safety Report 21535191 (Version 1)
Quarter: 2022Q4

REPORT INFORMATION
  Report Type: Spontaneous
  Country: US (occurrence: US)
  Receive Date: 20221101
  Receipt Date: 20221101
  Transmission Date: 20230113
  Serious: No
  Sender: FDA-Public Use
  Company Number: US-MIGRATION_PFIZER-2022BHV001966

PATIENT
  Sex: Female

DRUGS (1)
  1. NURTEC ODT [Suspect]
     Active Substance: RIMEGEPANT SULFATE
     Indication: Migraine
     Dosage: THIS WAS THE PATIENT^S FIRST DOSE OF NURTEC. PATIENT STOPPED USING THE NURTEC ODT THE SAME DAY SHE T
     Route: 065
     Dates: start: 20220721, end: 20220721

REACTIONS (3)
  - Pruritus [Not Recovered/Not Resolved]
  - Hypersensitivity [Recovering/Resolving]
  - Rash [Recovering/Resolving]
